FAERS Safety Report 24103321 (Version 1)
Quarter: 2024Q3

REPORT INFORMATION
  Report Type: Report from Study
  Country: DE (occurrence: None)
  Receive Date: 20240717
  Receipt Date: 20240717
  Transmission Date: 20241017
  Serious: Yes (Other)
  Sender: ASTRAZENECA
  Company Number: 2020SF31631

PATIENT
  Sex: Female

DRUGS (2)
  1. LYNPARZA [Suspect]
     Active Substance: OLAPARIB
     Indication: Breast cancer
     Dosage: UNKNOWN
     Route: 048
  2. LYNPARZA [Suspect]
     Active Substance: OLAPARIB
     Indication: BRCA2 gene mutation assay
     Dosage: UNKNOWN
     Route: 048

REACTIONS (4)
  - Polyneuropathy [Unknown]
  - Fatigue [Unknown]
  - Sleep disorder [Unknown]
  - Depression [Unknown]
